FAERS Safety Report 19088370 (Version 1)
Quarter: 2021Q2

REPORT INFORMATION
  Report Type: Spontaneous
  Country: US (occurrence: US)
  Receive Date: 20210402
  Receipt Date: 20210402
  Transmission Date: 20210717
  Serious: No
  Sender: FDA-Public Use
  Company Number: US-TEVA-2021-US-1896270

PATIENT
  Age: 84 Year
  Sex: Female

DRUGS (1)
  1. DILTIAZEM HYDROCHLORIDE TEVA [Suspect]
     Active Substance: DILTIAZEM HYDROCHLORIDE
     Indication: ATRIAL FIBRILLATION
     Route: 048
     Dates: start: 20210323

REACTIONS (12)
  - Swelling face [Unknown]
  - Heart rate decreased [Unknown]
  - Muscular weakness [Unknown]
  - Cerebral disorder [Unknown]
  - Hypotension [Unknown]
  - Dizziness [Unknown]
  - Nausea [Unknown]
  - Joint swelling [Unknown]
  - Asthenia [Unknown]
  - Disturbance in attention [Unknown]
  - Off label use [Unknown]
  - Product use in unapproved indication [Unknown]

NARRATIVE: CASE EVENT DATE: 202103
